FAERS Safety Report 7437000-3 (Version None)
Quarter: 2011Q1

REPORT INFORMATION
  Report Type: 
  Country: None (occurrence: None)
  Receive Date: 20110302
  Receipt Date: 20101123
  Transmission Date: 20110831
  Serious: No
  Sender: FDA-Public Use
  Company Number: 022766

PATIENT
  Sex: Female

DRUGS (2)
  1. CIMZIA [Suspect]
     Indication: RHEUMATOID ARTHRITIS
     Dosage: 400 MG 1X/2 WEEKS SUBCUTANEOUS, 200 MG 1X/2 WEEKS, 200 MG INSTEAD OF 400 MG SUBCUTANEOUS
     Route: 058
     Dates: start: 20101122
  2. CIMZIA [Suspect]
     Indication: RHEUMATOID ARTHRITIS
     Dosage: 400 MG 1X/2 WEEKS SUBCUTANEOUS, 200 MG 1X/2 WEEKS, 200 MG INSTEAD OF 400 MG SUBCUTANEOUS
     Route: 058
     Dates: start: 20101109

REACTIONS (1)
  - INCORRECT DOSE ADMINISTERED [None]
